FAERS Safety Report 9435101 (Version 2)
Quarter: 2014Q1

REPORT INFORMATION
  Report Type: Spontaneous
  Country: US (occurrence: US)
  Receive Date: 20130801
  Receipt Date: 20140122
  Transmission Date: 20141002
  Serious: Yes (Hospitalization)
  Sender: FDA-Public Use
  Company Number: US-BAYER-2013-092581

PATIENT
  Age: 36 Year
  Sex: Female
  Weight: 70.3 kg

DRUGS (2)
  1. MIRENA [Suspect]
     Indication: CONTRACEPTION
     Dosage: 20 MCG/24HR, CONT
     Route: 015
     Dates: start: 201104, end: 201212
  2. MIRENA [Suspect]
     Indication: MENORRHAGIA

REACTIONS (5)
  - Embedded device [None]
  - Genital haemorrhage [None]
  - Device issue [None]
  - Pain [None]
  - Menstrual disorder [None]
